FAERS Safety Report 11196390 (Version 1)
Quarter: 2015Q2

REPORT INFORMATION
  Report Type: Spontaneous
  Country: US (occurrence: None)
  Receive Date: 20150616
  Receipt Date: 20150616
  Transmission Date: 20150821
  Serious: No
  Sender: FDA-Public Use
  Company Number: None

PATIENT
  Age: 44 Year
  Sex: Female

DRUGS (2)
  1. IBRANCE [Suspect]
     Active Substance: PALBOCICLIB
     Indication: BREAST CANCER
     Dosage: 1 CAP DAILY FOR 21 DAYS
     Route: 048
     Dates: start: 20150523
  2. LETROZOLE 2.5MG APOTEX INC [Suspect]
     Active Substance: LETROZOLE
     Indication: BREAST CANCER
     Dosage: LETROZOLE 2.5MG DAILY PO
     Route: 048
     Dates: start: 20150515

REACTIONS (3)
  - Dry mouth [None]
  - Anxiety [None]
  - Photosensitivity reaction [None]

NARRATIVE: CASE EVENT DATE: 20150601
